FAERS Safety Report 19477616 (Version 1)
Quarter: 2021Q2

REPORT INFORMATION
  Report Type: Spontaneous
  Country: CN (occurrence: CN)
  Receive Date: 20210630
  Receipt Date: 20210630
  Transmission Date: 20210717
  Serious: Yes (Other)
  Sender: FDA-Public Use
  Company Number: CN-EISAI MEDICAL RESEARCH-EC-2021-095251

PATIENT
  Age: 28 Year
  Sex: Male
  Weight: 70 kg

DRUGS (3)
  1. FURAZOLIDONE [Suspect]
     Active Substance: FURAZOLIDONE
     Indication: HELICOBACTER INFECTION
     Dates: start: 20210608, end: 20210621
  2. COLLOIDAL BISMUTH PECTIN [Concomitant]
     Active Substance: BISMUTH
     Indication: HELICOBACTER INFECTION
     Route: 048
     Dates: start: 20210608, end: 20210621
  3. PARIET [Suspect]
     Active Substance: RABEPRAZOLE SODIUM
     Indication: HELICOBACTER INFECTION
     Route: 048
     Dates: start: 20210608, end: 20210621

REACTIONS (2)
  - Pruritus [Recovering/Resolving]
  - Rash maculo-papular [Recovering/Resolving]

NARRATIVE: CASE EVENT DATE: 20210621
